FAERS Safety Report 4355702-2 (Version None)
Quarter: 2004Q2

REPORT INFORMATION
  Report Type: 
  Country: None (occurrence: None)
  Receive Date: 20040507
  Receipt Date: 20040423
  Transmission Date: 20050107
  Serious: Yes (Death)
  Sender: FDA-Public Use
  Company Number: 163-20785-04040026

PATIENT
  Age: 74 Year
  Sex: Female

DRUGS (1)
  1. THALOMID [Suspect]
     Indication: MULTIPLE MYELOMA
     Dosage: 200 MG, AT BEDTIME, ORAL
     Route: 048
     Dates: start: 20030627, end: 20040301

REACTIONS (2)
  - CHRONIC OBSTRUCTIVE AIRWAYS DISEASE [None]
  - LUNG NEOPLASM MALIGNANT [None]
